FAERS Safety Report 8245319-1 (Version None)
Quarter: 2012Q1

REPORT INFORMATION
  Report Type: 
  Country: None (occurrence: None)
  Receive Date: 20120329
  Receipt Date: 20120321
  Transmission Date: 20120608
  Serious: Yes (Hospitalization, Other)
  Sender: FDA-Public Use
  Company Number: US-ELI_LILLY_AND_COMPANY-US201008002248

PATIENT
  Sex: Female
  Weight: 55.329 kg

DRUGS (26)
  1. PROAIR HFA [Concomitant]
     Dosage: 1 D/F, 2/D
     Route: 055
  2. CLONAZEPAM [Concomitant]
     Dosage: 10 MG, EACH EVENING
  3. MULTI-VITAMIN [Concomitant]
     Dosage: UNK, QD
  4. AUGMENTIN '125' [Concomitant]
     Dosage: 875/125 MG, BID FOR 7 DAYS
  5. SYMBICORT [Concomitant]
     Dosage: 80/4.5, 2 PUFFS TWICE A DAYUNK, BID
     Route: 065
  6. ALBUTEROL [Concomitant]
  7. BENICAR HCT [Concomitant]
     Dosage: 40/12.5MG, QD
  8. FOLIC ACID [Concomitant]
     Dosage: UNK, QD
     Route: 065
  9. FORTEO [Suspect]
     Indication: OSTEOPOROSIS
     Dosage: 20 UG, DAILY (1/D)
  10. METRONIDAZOLE [Concomitant]
     Dosage: UNK UNK, BID
     Route: 061
  11. METOPROLOL SUCCINATE [Concomitant]
     Dosage: 12.5 MG, DAILY (1/D)
  12. VITAMIN B-12 [Concomitant]
     Dosage: 500 UG, QD
  13. MELATONIN [Concomitant]
     Indication: SLEEP DISORDER
     Dosage: 5 MG, EACH EVENING
  14. FORTEO [Suspect]
     Dosage: 20 UG, QD
     Route: 065
  15. TYLENOL (CAPLET) [Concomitant]
     Dosage: 500 MG, AS NEEDED
  16. SPIRIVA [Concomitant]
     Dosage: 1 D/F, DAILY (1/D)
  17. LOVASTATIN [Concomitant]
     Dosage: 1 D/F, EACH EVENING
  18. FORTEO [Suspect]
     Dosage: 20 UG, DAILY (1/D)
  19. CLONAZEPAM [Concomitant]
     Indication: MUSCLE SPASMS
     Dosage: 0.5 MG, EACH EVENING
  20. ASCORBIC ACID [Concomitant]
     Dosage: 500 MG, QD
     Route: 065
  21. PRILOSEC [Concomitant]
     Dosage: 1 D/F, DAILY (1/D)
  22. CALCIUM CARBONATE [Concomitant]
  23. CALCIUM W/MAGNESIUM/ZINC [Concomitant]
  24. CALCIUM +VIT D [Concomitant]
     Route: 065
  25. FORTEO [Suspect]
     Dosage: 20 UG, DAILY (1/D)
  26. VITAMIN B3 [Concomitant]

REACTIONS (24)
  - MYOCARDIAL INFARCTION [None]
  - BRONCHITIS [None]
  - MALAISE [None]
  - HYPOAESTHESIA [None]
  - ALOPECIA [None]
  - CHEST PAIN [None]
  - DIZZINESS [None]
  - PULMONARY FIBROSIS [None]
  - VISION BLURRED [None]
  - BLOOD TEST ABNORMAL [None]
  - HEART RATE INCREASED [None]
  - MUSCLE SPASMS [None]
  - SPEECH DISORDER [None]
  - PNEUMONIA [None]
  - DEEP VEIN THROMBOSIS [None]
  - INFLUENZA LIKE ILLNESS [None]
  - SPUTUM DISCOLOURED [None]
  - INFECTION [None]
  - INFLUENZA [None]
  - PRODUCTIVE COUGH [None]
  - VISUAL IMPAIRMENT [None]
  - CHILLS [None]
  - FATIGUE [None]
  - NAUSEA [None]
